FAERS Safety Report 22014187 (Version 1)
Quarter: 2023Q1

REPORT INFORMATION
  Report Type: Spontaneous
  Country: US (occurrence: US)
  Receive Date: 20230221
  Receipt Date: 20230221
  Transmission Date: 20230418
  Serious: Yes (Other)
  Sender: FDA-Public Use
  Company Number: US-SUNPHARMA-2023R1-377670AA

PATIENT
  Sex: Male
  Weight: 71.21 kg

DRUGS (4)
  1. METOPROLOL [Suspect]
     Active Substance: METOPROLOL
     Indication: Amyloidosis
     Dosage: 25 MILLIGRAM, BID
     Route: 065
     Dates: start: 202201
  2. ELIQUIS [Concomitant]
     Active Substance: APIXABAN
     Indication: Amyloidosis
     Dosage: 5 MILLIGRAM, BID
     Route: 065
     Dates: start: 202201
  3. LIPITOR [Concomitant]
     Active Substance: ATORVASTATIN CALCIUM
     Indication: Amyloidosis
     Dosage: 20 MILLIGRAM, QD IN EVENING
     Route: 065
     Dates: start: 202201
  4. VYNDAMAX [Concomitant]
     Active Substance: TAFAMIDIS
     Indication: Amyloidosis
     Dosage: 61 MILLIGRAM
     Route: 048
     Dates: start: 202201

REACTIONS (2)
  - Amyloidosis [Unknown]
  - Off label use [Unknown]
